FAERS Safety Report 19058429 (Version 5)
Quarter: 2021Q2

REPORT INFORMATION
  Report Type: Spontaneous
  Country: US (occurrence: US)
  Receive Date: 20210325
  Receipt Date: 20210423
  Transmission Date: 20210717
  Serious: Yes (Disabling, Other)
  Sender: FDA-Public Use
  Company Number: US-SA-2021SA093458

PATIENT
  Age: 78 Year
  Sex: Female

DRUGS (1)
  1. LANTUS SOLOSTAR [Suspect]
     Active Substance: INSULIN GLARGINE
     Indication: TYPE 2 DIABETES MELLITUS
     Dosage: 13 IU, PRN
     Route: 058

REACTIONS (10)
  - Diabetes mellitus inadequate control [Unknown]
  - Blindness unilateral [Unknown]
  - Drug ineffective [Unknown]
  - Cough [Unknown]
  - Product storage error [Unknown]
  - Malaise [Unknown]
  - Gait disturbance [Unknown]
  - Intentional product misuse [Unknown]
  - Visual impairment [Unknown]
  - Rheumatoid arthritis [Unknown]
